FAERS Safety Report 7353768-9 (Version None)
Quarter: 2011Q1

REPORT INFORMATION
  Report Type: 
  Country: None (occurrence: None)
  Receive Date: 20110315
  Receipt Date: 20110228
  Transmission Date: 20110831
  Serious: Yes (Hospitalization)
  Sender: FDA-Public Use
  Company Number: DE-ACTELION-A-US2011-46187

PATIENT

DRUGS (1)
  1. VENTAVIS [Suspect]
     Indication: PULMONARY HYPERTENSION
     Dosage: 2.5 UG, 5 X DAY
     Route: 055
     Dates: start: 20101118

REACTIONS (3)
  - WOUND INFECTION [None]
  - IMPAIRED HEALING [None]
  - MEDICAL DEVICE IMPLANTATION [None]
